FAERS Safety Report 8064359-9 (Version None)
Quarter: 2012Q1

REPORT INFORMATION
  Report Type: 
  Country: None (occurrence: None)
  Receive Date: 20120123
  Receipt Date: 20120113
  Transmission Date: 20120608
  Serious: Yes (Other)
  Sender: FDA-Public Use
  Company Number: US-ASTRAZENECA-2011SE70949

PATIENT
  Age: 64 Year
  Sex: Female
  Weight: 113.4 kg

DRUGS (5)
  1. SEROQUEL [Suspect]
     Indication: SLEEP DISORDER
     Route: 048
     Dates: start: 20090101
  2. SEROQUEL [Suspect]
     Route: 048
  3. DETROL LA [Concomitant]
     Indication: URINARY INCONTINENCE
  4. SEROQUEL [Suspect]
     Route: 048
  5. CYMBALTA [Concomitant]
     Indication: DEPRESSION

REACTIONS (9)
  - INSOMNIA [None]
  - JOINT DISLOCATION [None]
  - BACK PAIN [None]
  - DRUG DOSE OMISSION [None]
  - OFF LABEL USE [None]
  - TACHYPHRENIA [None]
  - MALAISE [None]
  - CONVULSION [None]
  - ROAD TRAFFIC ACCIDENT [None]
